FAERS Safety Report 23940870 (Version 1)
Quarter: 2024Q2

REPORT INFORMATION
  Report Type: Spontaneous
  Country: US (occurrence: None)
  Receive Date: 20240604
  Receipt Date: 20240604
  Transmission Date: 20240716
  Serious: No
  Sender: FDA-Public Use
  Company Number: None

PATIENT

DRUGS (1)
  1. AMIKACIN SULFATE [Suspect]
     Active Substance: AMIKACIN SULFATE

REACTIONS (4)
  - Intercepted product preparation error [None]
  - Product dispensing error [None]
  - Transcription medication error [None]
  - Manufacturing process control procedure not performed [None]
